FAERS Safety Report 4345407-6 (Version None)
Quarter: 2004Q2

REPORT INFORMATION
  Report Type: 
  Country: None (occurrence: None)
  Receive Date: 20040421
  Receipt Date: 20040407
  Transmission Date: 20050107
  Serious: Yes (Other)
  Sender: FDA-Public Use
  Company Number: L04-POL-01658-01

PATIENT

DRUGS (2)
  1. DILTIAZEM [Suspect]
     Indication: OVERDOSE
  2. METOPROLOL [Suspect]
     Indication: OVERDOSE

REACTIONS (3)
  - CARDIOGENIC SHOCK [None]
  - HAEMODYNAMIC INSTABILITY [None]
  - OVERDOSE [None]
